FAERS Safety Report 25424788 (Version 1)
Quarter: 2025Q2

REPORT INFORMATION
  Report Type: Spontaneous
  Country: CZ (occurrence: CZ)
  Receive Date: 20250611
  Receipt Date: 20250611
  Transmission Date: 20250717
  Serious: Yes (Hospitalization)
  Sender: SANDOZ
  Company Number: CZ-002147023-NVSC2025CZ091657

PATIENT
  Age: 56 Year
  Sex: Female

DRUGS (3)
  1. DEXAMETHASONE\TOBRAMYCIN [Suspect]
     Active Substance: DEXAMETHASONE\TOBRAMYCIN
     Indication: Dermatitis
     Route: 065
     Dates: start: 2024
  2. TERBINAFINE [Suspect]
     Active Substance: TERBINAFINE
     Indication: Tinea capitis
     Dosage: 250 MG, QD
     Route: 048
  3. Artificial tears [Concomitant]
     Indication: Conjunctival hyperaemia
     Route: 065
     Dates: start: 2024

REACTIONS (4)
  - Skin disorder [Recovering/Resolving]
  - Disease progression [Recovering/Resolving]
  - Pustule [Recovering/Resolving]
  - Hepatic enzyme increased [Recovering/Resolving]

NARRATIVE: CASE EVENT DATE: 20240101
